FAERS Safety Report 18396341 (Version 2)
Quarter: 2020Q4

REPORT INFORMATION
  Report Type: Spontaneous
  Country: US (occurrence: US)
  Receive Date: 20201019
  Receipt Date: 20201021
  Transmission Date: 20210114
  Serious: No
  Sender: FDA-Public Use
  Company Number: US-TEVA-2020-US-1838522

PATIENT
  Age: 61 Year
  Sex: Female
  Weight: 66 kg

DRUGS (15)
  1. OXYCONTIN [Suspect]
     Active Substance: OXYCODONE HYDROCHLORIDE
     Indication: PAIN
     Dosage: 20 MILLIGRAM DAILY;
     Route: 048
  2. NEURONTIN [Suspect]
     Active Substance: GABAPENTIN
     Dosage: 900 EVERY 8 HOURS
     Route: 065
  3. GABAPENTIN. [Suspect]
     Active Substance: GABAPENTIN
     Dosage: 900 MILLIGRAM DAILY;
     Route: 048
  4. ARSENICUM ALBUM [Suspect]
     Active Substance: HOMEOPATHICS
     Indication: NAUSEA
     Dosage: TAKE 30 CONCENTRATED
     Route: 048
  5. ZOFRAN [Suspect]
     Active Substance: ONDANSETRON HYDROCHLORIDE
     Indication: VOMITING
  6. MEMANTINE. [Suspect]
     Active Substance: MEMANTINE
     Dosage: 20 MILLIGRAM DAILY;
     Route: 048
  7. ARSENICUM ALBUM [Suspect]
     Active Substance: HOMEOPATHICS
     Indication: VOMITING
  8. IBRANCE [Suspect]
     Active Substance: PALBOCICLIB
     Dosage: 125 MILLIGRAM DAILY;
     Route: 048
  9. FEMARA [Suspect]
     Active Substance: LETROZOLE
     Dosage: 2.5 MILLIGRAM DAILY; 2.5 MG ORAL TABLET, TAKE 1 TAB BY MOUTH DAILY
     Route: 048
  10. CYCLOBENZAPRINE. [Suspect]
     Active Substance: CYCLOBENZAPRINE
     Indication: MUSCLE SPASMS
     Dosage: 15 MILLIGRAM DAILY;
     Route: 048
  11. OXYCODONE [Suspect]
     Active Substance: OXYCODONE
     Indication: PAIN
     Dosage: 30 MILLIGRAM DAILY;
     Route: 048
  12. DECADRON [Suspect]
     Active Substance: DEXAMETHASONE
     Indication: PAIN
     Dosage: 4 MILLIGRAM DAILY;
     Route: 048
  13. ZOFRAN [Suspect]
     Active Substance: ONDANSETRON HYDROCHLORIDE
     Indication: NAUSEA
     Dosage: 16 MILLIGRAM DAILY;
     Route: 048
  14. BACLOFEN. [Suspect]
     Active Substance: BACLOFEN
     Dosage: 20 MILLIGRAM DAILY;
     Route: 048
  15. MORPHINE IR [Suspect]
     Active Substance: MORPHINE
     Indication: PAIN
     Dosage: EVERY 4 HOURS AS NEEDED
     Route: 048

REACTIONS (3)
  - Fatigue [Unknown]
  - Malaise [Unknown]
  - Dyspnoea [Unknown]
